FAERS Safety Report 14558763 (Version 1)
Quarter: 2018Q1

REPORT INFORMATION
  Report Type: Spontaneous
  Country: CZ (occurrence: CZ)
  Receive Date: 20180221
  Receipt Date: 20180221
  Transmission Date: 20180509
  Serious: Yes (Hospitalization, Other)
  Sender: FDA-Public Use
  Company Number: CZ-MARINA BIOTECH, INC.-2018MARINA000500

PATIENT

DRUGS (12)
  1. ANOPYRIN [Concomitant]
     Active Substance: ASPIRIN
     Indication: MYOCARDIAL ISCHAEMIA
     Dosage: 100 MG, QD
     Dates: start: 1983, end: 20160530
  2. CLOPIDOGREL [Concomitant]
     Active Substance: CLOPIDOGREL BISULFATE
     Indication: MYOCARDIAL ISCHAEMIA
     Dosage: 75 MG, QD
     Route: 065
     Dates: start: 20140106, end: 20160530
  3. CONCOR COR [Concomitant]
     Active Substance: BISOPROLOL FUMARATE
     Indication: HYPERTENSION
     Dosage: 2.5 MG, QD
     Dates: start: 20160106
  4. FURON                              /00032602/ [Concomitant]
     Indication: HYPERTENSION
     Dosage: 40 MG, QOD
     Dates: start: 20160607, end: 20160611
  5. ONBREZ [Concomitant]
     Active Substance: INDACATEROL
     Indication: CHRONIC OBSTRUCTIVE PULMONARY DISEASE
     Dosage: 150 ?G, QD
     Dates: start: 2014
  6. PRESTANCE [Suspect]
     Active Substance: AMLODIPINE BESYLATE\PERINDOPRIL ARGININE
     Indication: HYPERTENSION
     Dosage: 1 (10MG/5MG) TABLET DAILY
     Route: 048
     Dates: start: 2010, end: 20160602
  7. EUPHYLLIN                          /00003701/ [Concomitant]
     Indication: CHRONIC OBSTRUCTIVE PULMONARY DISEASE
     Dosage: 200 MG, BID
     Dates: start: 2012, end: 20160531
  8. SEEBRI [Concomitant]
     Active Substance: GLYCOPYRRONIUM
     Indication: CHRONIC OBSTRUCTIVE PULMONARY DISEASE
     Dosage: 44 ?G, BID
     Dates: start: 2014
  9. TRIMETAZIDINE NOS [Concomitant]
     Active Substance: TRIMETAZIDINE
     Indication: PRODUCT USED FOR UNKNOWN INDICATION
     Dosage: 35 MG, BID
     Dates: start: 20160112, end: 20160530
  10. PRESTANCE [Suspect]
     Active Substance: AMLODIPINE BESYLATE\PERINDOPRIL ARGININE
     Dosage: 1 (10MG/10MG) TABLET DAILY
     Route: 048
     Dates: start: 20160603, end: 20171213
  11. BERODUAL N [Concomitant]
     Active Substance: FENOTEROL HYDROBROMIDE\IPRATROPIUM BROMIDE
     Indication: CHRONIC OBSTRUCTIVE PULMONARY DISEASE
     Dosage: 1 DF, PRN
     Dates: start: 2012
  12. HELICID                            /00661202/ [Concomitant]
     Indication: GASTRODUODENITIS
     Dosage: 20 MG, BID
     Dates: start: 201002, end: 20160106

REACTIONS (24)
  - Frontotemporal dementia [Recovered/Resolved]
  - Polyneuropathy alcoholic [Not Recovered/Not Resolved]
  - Blood potassium decreased [Recovered/Resolved]
  - Normocytic anaemia [Not Recovered/Not Resolved]
  - Alcohol poisoning [Recovered/Resolved]
  - Subarachnoid haemorrhage [Unknown]
  - Loss of consciousness [Unknown]
  - Angina pectoris [Recovered/Resolved]
  - Angioedema [Recovered/Resolved]
  - Organic brain syndrome [Unknown]
  - Chronic obstructive pulmonary disease [Not Recovered/Not Resolved]
  - Product use issue [Unknown]
  - Diarrhoea [Recovered/Resolved]
  - Chronic gastritis [Not Recovered/Not Resolved]
  - Skull fracture [Recovered/Resolved]
  - Cystitis [Recovered/Resolved]
  - Gait disturbance [Unknown]
  - Hypoacusis [Not Recovered/Not Resolved]
  - Hyponatraemia [Recovered/Resolved]
  - Hypertension [Recovered/Resolved]
  - Weight increased [Unknown]
  - Bundle branch block right [Not Recovered/Not Resolved]
  - Traumatic intracranial haemorrhage [Recovered/Resolved]
  - Fall [Recovered/Resolved]

NARRATIVE: CASE EVENT DATE: 201202
